FAERS Safety Report 24458734 (Version 1)
Quarter: 2024Q4

REPORT INFORMATION
  Report Type: Spontaneous
  Country: CA (occurrence: CA)
  Receive Date: 20241018
  Receipt Date: 20241018
  Transmission Date: 20250115
  Serious: Yes (Death, Hospitalization)
  Sender: ROCHE
  Company Number: CA-ROCHE-10000108743

PATIENT
  Age: 60 Year
  Sex: Female

DRUGS (7)
  1. RITUXIMAB [Suspect]
     Active Substance: RITUXIMAB
     Indication: Product used for unknown indication
     Route: 065
  2. SOLIRIS [Suspect]
     Active Substance: ECULIZUMAB
     Indication: Neuromyelitis optica spectrum disorder
     Dosage: SOLIRIS SINGLE USE, 300 MG/30ML
     Route: 042
  3. SOLIRIS [Suspect]
     Active Substance: ECULIZUMAB
     Dosage: SOLIRIS SINGLE USE, 300 MG/30ML
     Route: 065
  4. SOLIRIS [Suspect]
     Active Substance: ECULIZUMAB
     Dosage: SOLIRIS SINGLE USE, 300 MG/30ML
     Route: 042
  5. CALCIUM [Concomitant]
     Active Substance: CALCIUM
     Route: 065
  6. TYLENOL [Concomitant]
     Active Substance: ACETAMINOPHEN
     Route: 065
  7. VITAMIN D [Concomitant]
     Active Substance: VITAMIN D NOS
     Route: 065

REACTIONS (10)
  - Bacteraemia [Fatal]
  - Bacterial sepsis [Fatal]
  - Brain oedema [Fatal]
  - Cardiac arrest [Fatal]
  - Cardiac failure [Fatal]
  - Endocarditis [Fatal]
  - Infection [Fatal]
  - Neuromyelitis optica spectrum disorder [Fatal]
  - Nutritional condition abnormal [Fatal]
  - Sepsis [Fatal]
